FAERS Safety Report 12928043 (Version 3)
Quarter: 2016Q4

REPORT INFORMATION
  Report Type: Spontaneous
  Country: FR (occurrence: FR)
  Receive Date: 20161110
  Receipt Date: 20161206
  Transmission Date: 20170207
  Serious: Yes (Death, Hospitalization, Other)
  Sender: FDA-Public Use
  Company Number: FR-009507513-1610FRA011958

PATIENT
  Age: 78 Year
  Sex: Male

DRUGS (9)
  1. DOLIPRANE [Concomitant]
     Active Substance: ACETAMINOPHEN
     Dosage: UNK, PRN
  2. TRIATEC (RAMIPRIL) [Concomitant]
     Active Substance: RAMIPRIL
     Indication: HYPERTENSION
     Dosage: 2.5 MG, 1 TABLET MORNING
     Route: 048
  3. KREDEX [Concomitant]
     Active Substance: CARVEDILOL
     Indication: ARRHYTHMIA
     Dosage: 25 MG TABLET, 1 TABLET IN MORNING AND EVENING
     Route: 048
  4. ALFUZOSIN HYDROCHLORIDE. [Concomitant]
     Active Substance: ALFUZOSIN HYDROCHLORIDE
     Dosage: 10 MG TABLET, 1 TABLET EVENT
  5. ADENURIC [Concomitant]
     Active Substance: FEBUXOSTAT
     Dosage: 1 TABLET, PER DAY
  6. FUROSEMIDE. [Concomitant]
     Active Substance: FUROSEMIDE
     Indication: OEDEMA
     Dosage: 40 MG TABLET, 3 TABLETS, MORNING
     Route: 048
     Dates: start: 20040712
  7. PREVISCAN [Concomitant]
     Active Substance: FLUINDIONE
     Indication: ANTICOAGULANT THERAPY
     Dosage: 20 MG TABLET, 3/4 TABLET EVENING
     Dates: start: 20040601
  8. ZEPATIER [Suspect]
     Active Substance: ELBASVIR\GRAZOPREVIR
     Indication: HEPATITIS C
     Dosage: 200/50 MG (1 TABLET), QD
     Route: 048
     Dates: start: 20160905
  9. ZYMAD [Concomitant]
     Active Substance: CHOLECALCIFEROL

REACTIONS (4)
  - Cerebral haematoma [Fatal]
  - Intraventricular haemorrhage [Fatal]
  - Respiratory arrest [Fatal]
  - Cardiac arrest [Fatal]

NARRATIVE: CASE EVENT DATE: 2016
